FAERS Safety Report 12415003 (Version 3)
Quarter: 2016Q2

REPORT INFORMATION
  Report Type: Spontaneous
  Country: NO (occurrence: NO)
  Receive Date: 20160530
  Receipt Date: 20160621
  Transmission Date: 20160815
  Serious: Yes (Hospitalization, Other)
  Sender: FDA-Public Use
  Company Number: NO-ROCHE-1765264

PATIENT
  Age: 42 Year
  Sex: Female

DRUGS (2)
  1. XOLAIR [Suspect]
     Active Substance: OMALIZUMAB
     Indication: URTICARIA
     Route: 030
     Dates: start: 20141104, end: 20160115
  2. XOLAIR [Suspect]
     Active Substance: OMALIZUMAB
     Route: 065
     Dates: start: 20160527

REACTIONS (6)
  - Pericarditis [Recovered/Resolved]
  - Incorrect route of drug administration [Unknown]
  - Pleural effusion [Unknown]
  - Pleurisy [Recovered/Resolved]
  - Pericardial effusion [Unknown]
  - Urticaria [Unknown]

NARRATIVE: CASE EVENT DATE: 20151104
